FAERS Safety Report 19661464 (Version 1)
Quarter: 2021Q3

REPORT INFORMATION
  Report Type: Spontaneous
  Country: US (occurrence: US)
  Receive Date: 20210805
  Receipt Date: 20210805
  Transmission Date: 20211014
  Serious: Yes (Other)
  Sender: FDA-Public Use
  Company Number: US-ABBVIE-21K-163-4024127-00

PATIENT
  Sex: Female

DRUGS (1)
  1. SYNTHROID [Suspect]
     Active Substance: LEVOTHYROXINE SODIUM
     Indication: PRODUCT USED FOR UNKNOWN INDICATION
     Dosage: 6 DAYS PER WEEK
     Route: 048
     Dates: start: 201909

REACTIONS (3)
  - Malignant neoplasm of thymus [Unknown]
  - Autoimmune thyroiditis [Unknown]
  - Alopecia [Unknown]
